FAERS Safety Report 8281506-4 (Version None)
Quarter: 2012Q2

REPORT INFORMATION
  Report Type: 
  Country: None (occurrence: None)
  Receive Date: 20120413
  Receipt Date: 20120411
  Transmission Date: 20120825
  Serious: Yes (Other)
  Sender: FDA-Public Use
  Company Number: US-PFIZER INC-2012090656

PATIENT
  Sex: Female
  Weight: 120 kg

DRUGS (13)
  1. VITAMIN B COMPLEX CAP [Concomitant]
     Dosage: DAILY
  2. ASCORBIC ACID/TOCOPHEROL [Concomitant]
     Indication: EYE DISORDER
     Dosage: DAILY
  3. LOSARTAN [Concomitant]
     Indication: HYPERTENSION
     Dosage: 100 MG, DAILY
  4. CELEBREX [Suspect]
     Dosage: 200 MG, DAILY
     Dates: end: 20110101
  5. ATENOLOL [Concomitant]
     Indication: HYPERTENSION
     Dosage: 50 MG, DAILY
  6. CALCIUM WITH VITAMIN D [Concomitant]
     Dosage: 1200 MG /1000 MG, 2X/DAY
  7. FISH OIL [Concomitant]
     Dosage: 1200 MG, DAILY
  8. ACETYLSALICYLIC ACID [Concomitant]
     Dosage: 81 MG, DAILY
  9. MULTI-VITAMINS [Concomitant]
     Dosage: UNK
  10. CELEBREX [Suspect]
     Indication: OSTEOARTHRITIS
     Dosage: 200 MG, 2X/DAY
     Dates: end: 20110101
  11. HYDROCHLOROTHIAZIDE [Concomitant]
     Indication: HYPERTENSION
     Dosage: 25 MG, DAILY
  12. SYNTHROID [Concomitant]
     Indication: HYPOTHYROIDISM
     Dosage: 0.088 MG, DAILY
  13. GLUCOSAMINE SULFATE [Concomitant]
     Indication: ARTHROPATHY
     Dosage: 1000 MG, 2X/DAY

REACTIONS (1)
  - ARTHROPATHY [None]
